FAERS Safety Report 13485846 (Version 1)
Quarter: 2017Q2

REPORT INFORMATION
  Report Type: Spontaneous
  Country: US (occurrence: US)
  Receive Date: 20170425
  Receipt Date: 20170425
  Transmission Date: 20170830
  Serious: No
  Sender: FDA-Public Use
  Company Number: None

PATIENT
  Age: 62 Year
  Sex: Male
  Weight: 71.5 kg

DRUGS (2)
  1. LENALIDOMIDE (CC-5013) [Suspect]
     Active Substance: LENALIDOMIDE
     Dates: end: 20170423
  2. VELCADE [Concomitant]
     Active Substance: BORTEZOMIB
     Dates: end: 20170420

REACTIONS (6)
  - Asthenia [None]
  - Orthostatic hypotension [None]
  - Loss of consciousness [None]
  - Gait disturbance [None]
  - Dizziness postural [None]
  - Dysstasia [None]

NARRATIVE: CASE EVENT DATE: 20170424
